FAERS Safety Report 20428831 (Version 1)
Quarter: 2022Q1

REPORT INFORMATION
  Report Type: Spontaneous
  Country: IR (occurrence: IR)
  Receive Date: 20220204
  Receipt Date: 20220204
  Transmission Date: 20220423
  Serious: Yes (Death, Hospitalization)
  Sender: FDA-Public Use
  Company Number: IR-STRIDES ARCOLAB LIMITED-2022SP000890

PATIENT
  Age: 34 Year
  Sex: Male

DRUGS (4)
  1. PREDNISOLONE [Suspect]
     Active Substance: PREDNISOLONE
     Indication: Disseminated intravascular coagulation
     Dosage: 1 GRAM PER KILOGRAM
     Route: 065
     Dates: start: 202105
  2. ChAdOx1nCov-19 [Concomitant]
     Indication: COVID-19 immunisation
     Dosage: UNK
     Route: 065
     Dates: start: 202105
  3. PANTOPRAZOLE [Concomitant]
     Active Substance: PANTOPRAZOLE
     Indication: Abdominal pain
     Dosage: UNK
     Route: 065
     Dates: start: 202105
  4. ACETAMINOPHEN [Concomitant]
     Active Substance: ACETAMINOPHEN
     Indication: Abdominal pain
     Dosage: UNK
     Route: 065
     Dates: start: 202105

REACTIONS (3)
  - Drug ineffective [Fatal]
  - Acute hepatic failure [Fatal]
  - Hepatic infarction [Fatal]

NARRATIVE: CASE EVENT DATE: 20210501
